FAERS Safety Report 4939949-X (Version None)
Quarter: 2006Q1

REPORT INFORMATION
  Report Type: 
  Country: None (occurrence: None)
  Receive Date: 20060310
  Receipt Date: 20060306
  Transmission Date: 20060701
  Serious: Yes (Hospitalization)
  Sender: FDA-Public Use
  Company Number: ES-GLAXOSMITHKLINE-B0415060A

PATIENT
  Age: 78 Year
  Sex: Female

DRUGS (2)
  1. AUGMENTIN '125' [Suspect]
     Indication: DRUG USE FOR UNKNOWN INDICATION
     Dosage: 2.6G PER DAY
     Route: 048
     Dates: start: 20050417, end: 20050424
  2. NEOBRUFEN [Suspect]
     Indication: DRUG USE FOR UNKNOWN INDICATION
     Dosage: 1.8G PER DAY
     Route: 048
     Dates: start: 20050417, end: 20050424

REACTIONS (1)
  - SKIN DISORDER [None]
